FAERS Safety Report 7689877-4 (Version None)
Quarter: 2011Q3

REPORT INFORMATION
  Report Type: 
  Country: None (occurrence: None)
  Receive Date: 20110818
  Receipt Date: 20110815
  Transmission Date: 20111222
  Serious: Yes (Hospitalization)
  Sender: FDA-Public Use
  Company Number: US-BIOGENIDEC-2011BI030908

PATIENT
  Age: 59 Year
  Sex: Male

DRUGS (1)
  1. AVONEX [Suspect]
     Indication: MULTIPLE SCLEROSIS
     Route: 030
     Dates: start: 20110812, end: 20110812

REACTIONS (4)
  - HYPOAESTHESIA [None]
  - SPEECH DISORDER [None]
  - LOSS OF CONTROL OF LEGS [None]
  - PYREXIA [None]
